FAERS Safety Report 4932272-9 (Version None)
Quarter: 2006Q1

REPORT INFORMATION
  Report Type: 
  Country: None (occurrence: None)
  Receive Date: 20060228
  Receipt Date: 20060223
  Transmission Date: 20060701
  Serious: Yes (Other)
  Sender: FDA-Public Use
  Company Number: FRWYE377409FEB06

PATIENT
  Age: 84 Year
  Sex: Female

DRUGS (10)
  1. EFFEXOR XR [Suspect]
     Dosage: 75 MG 1X PER 1 DAY ORAL
     Route: 048
     Dates: start: 20040401
  2. COLECALCIFEROL (COLCALCIFEROL) [Concomitant]
  3. CALCIUM CARBONATE (CALCIUM CARBONATE) [Concomitant]
  4. FORLAX (MACROGOL) [Concomitant]
  5. EFFERALGAN CODEINE (PARACETAMOL/CODEINE PHOSPHATE) [Concomitant]
  6. LEMOXIL (BROMAZEPAM) [Concomitant]
  7. INIPOMP (PANTOPRAZOLE) [Concomitant]
  8. POTASSIUM CHLORIDE [Concomitant]
  9. MICROLAX (SODIUM CITRATE/SODIUM LAURYL SULFOACETATE) [Concomitant]
  10. ESIDRIX [Concomitant]

REACTIONS (2)
  - ACUTE PRERENAL FAILURE [None]
  - HYPERTENSIVE CRISIS [None]
